FAERS Safety Report 9852348 (Version 1)
Quarter: 2014Q1

REPORT INFORMATION
  Report Type: Spontaneous
  Country: US (occurrence: None)
  Receive Date: 20140128
  Receipt Date: 20140128
  Transmission Date: 20141002
  Serious: Yes (Other)
  Sender: FDA-Public Use
  Company Number: None

PATIENT
  Sex: Female
  Weight: 59.88 kg

DRUGS (15)
  1. BUTRANS [Suspect]
     Dosage: 15MCG/HOUR EVERY 7 DAYS ON THE SKIN
     Dates: start: 201310, end: 20140102
  2. LEVOTHYROXINE [Concomitant]
  3. TRAMADOL [Concomitant]
  4. OXYBUTYNIN [Concomitant]
  5. PROMETHEUS [Concomitant]
  6. BUPRENORPHINE [Concomitant]
  7. CARTIAL [Concomitant]
  8. CITALOPRAM [Concomitant]
  9. BUPROPION [Concomitant]
  10. IPRATROPIUM [Concomitant]
  11. BROMIDE [Concomitant]
  12. COMBAVENT INHALER [Concomitant]
  13. SALTER AIRE MACHINE FOR ALBUTEROL SULFATE [Concomitant]
  14. STOOL SOFTENER [Concomitant]
  15. SLEEP AID [Concomitant]

REACTIONS (7)
  - Blister [None]
  - Rash [None]
  - Secretion discharge [None]
  - Pruritus [None]
  - Scab [None]
  - Scar [None]
  - Burning sensation [None]
